FAERS Safety Report 9927169 (Version 2)
Quarter: 2015Q1

REPORT INFORMATION
  Report Type: Spontaneous
  Country: US (occurrence: US)
  Receive Date: 20140226
  Receipt Date: 20150304
  Transmission Date: 20150721
  Serious: Yes (Other)
  Sender: FDA-Public Use
  Company Number: US-AMGEN-USASP2014006292

PATIENT
  Age: 53 Year
  Sex: Female

DRUGS (1)
  1. ENBREL [Suspect]
     Active Substance: ETANERCEPT
     Indication: RHEUMATOID ARTHRITIS
     Dosage: 50 MG, QWK
     Route: 065
     Dates: start: 20130429, end: 20140425

REACTIONS (13)
  - Paranasal sinus hypersecretion [Not Recovered/Not Resolved]
  - Bronchitis [Not Recovered/Not Resolved]
  - Dyspnoea [Not Recovered/Not Resolved]
  - Chest discomfort [Not Recovered/Not Resolved]
  - Hypotension [Not Recovered/Not Resolved]
  - Fatigue [Not Recovered/Not Resolved]
  - Cough [Not Recovered/Not Resolved]
  - Somnolence [Not Recovered/Not Resolved]
  - Hypoxia [Not Recovered/Not Resolved]
  - Oropharyngeal pain [Not Recovered/Not Resolved]
  - Sinus headache [Not Recovered/Not Resolved]
  - Asthma [Not Recovered/Not Resolved]
  - Pallor [Not Recovered/Not Resolved]

NARRATIVE: CASE EVENT DATE: 2013
